FAERS Safety Report 6645855-5 (Version None)
Quarter: 2010Q1

REPORT INFORMATION
  Report Type: 
  Country: None (occurrence: None)
  Receive Date: 20100318
  Receipt Date: 20100312
  Transmission Date: 20100710
  Serious: Yes (Hospitalization)
  Sender: FDA-Public Use
  Company Number: 2009SP001727

PATIENT
  Age: 53 Year
  Sex: Female
  Weight: 82.5547 kg

DRUGS (4)
  1. PEG-INTRON [Suspect]
     Indication: HEPATITIS C
     Dosage: 135 MCG; SC; 135 MCG; SC
     Route: 058
     Dates: start: 20080827, end: 20090120
  2. PEG-INTRON [Suspect]
     Indication: HEPATITIS C
     Dosage: 135 MCG; SC; 135 MCG; SC
     Route: 058
     Dates: end: 20090129
  3. REBETOL [Suspect]
     Indication: HEPATITIS C
     Dosage: 1000 MG; PO; 1000 MG; PO
     Route: 048
     Dates: start: 20080827, end: 20090120
  4. REBETOL [Suspect]
     Indication: HEPATITIS C
     Dosage: 1000 MG; PO; 1000 MG; PO
     Route: 048
     Dates: end: 20090129

REACTIONS (16)
  - ARTHRALGIA [None]
  - ASTHENIA [None]
  - CENTRAL NERVOUS SYSTEM NEOPLASM [None]
  - DEHYDRATION [None]
  - DIZZINESS [None]
  - FALL [None]
  - HYPONATRAEMIA [None]
  - INAPPROPRIATE ANTIDIURETIC HORMONE SECRETION [None]
  - LUNG NEOPLASM [None]
  - ORTHOSTATIC HYPOTENSION [None]
  - POLYDIPSIA [None]
  - POLYURIA [None]
  - PORPHYRIA [None]
  - PYREXIA [None]
  - RASH GENERALISED [None]
  - SYNCOPE [None]
